FAERS Safety Report 9663758 (Version 1)
Quarter: 2013Q4

REPORT INFORMATION
  Report Type: Spontaneous
  Country: DE (occurrence: DE)
  Receive Date: 20131101
  Receipt Date: 20131101
  Transmission Date: 20140711
  Serious: Yes (Hospitalization)
  Sender: FDA-Public Use
  Company Number: PHHY2013DE122485

PATIENT
  Age: 49 Year
  Sex: Female
  Weight: 118 kg

DRUGS (6)
  1. GILENYA [Suspect]
     Indication: MULTIPLE SCLEROSIS
     Dosage: 0.5 MG, QD
     Route: 048
     Dates: start: 2011
  2. TEGRETARD [Concomitant]
     Dosage: 400 MG, QD
     Route: 048
  3. TEGRETARD [Concomitant]
     Dosage: 200 MG, QD
     Route: 048
  4. CANDESARTAN [Concomitant]
     Dosage: 16 MG, QD
     Route: 048
  5. AMLODIPINE [Concomitant]
     Dosage: 5 MG, QD
     Route: 048
  6. BERLTHYROX [Concomitant]
     Dosage: 100 UG, UNK
     Route: 048

REACTIONS (3)
  - Cerebrovascular accident [Not Recovered/Not Resolved]
  - Hemiparesis [Not Recovered/Not Resolved]
  - Dysarthria [Not Recovered/Not Resolved]
